FAERS Safety Report 5052034-4 (Version None)
Quarter: 2006Q3

REPORT INFORMATION
  Report Type: 
  Country: None (occurrence: None)
  Receive Date: 20060711
  Receipt Date: 20060621
  Transmission Date: 20061208
  Serious: Yes (Disabling, Other)
  Sender: FDA-Public Use
  Company Number: FR200603006968

PATIENT
  Age: 73 Year
  Sex: Male
  Weight: 71 kg

DRUGS (3)
  1. GEMZAR [Suspect]
     Indication: ADENOCARCINOMA PANCREAS
     Dosage: 1000 MG/M2, OTHER, INTRAVENOUS
     Route: 042
     Dates: start: 20060208
  2. ZOFRAN [Concomitant]
  3. SOLU-MEDROL [Concomitant]

REACTIONS (5)
  - EATING DISORDER [None]
  - GAIT DISTURBANCE [None]
  - MUSCLE CONTRACTURE [None]
  - OSTEOARTHRITIS [None]
  - PARAESTHESIA [None]
